FAERS Safety Report 6821469-9 (Version None)
Quarter: 2010Q3

REPORT INFORMATION
  Report Type: 
  Country: None (occurrence: None)
  Receive Date: 20100707
  Receipt Date: 20080903
  Transmission Date: 20110219
  Serious: No
  Sender: FDA-Public Use
  Company Number: US-PFIZER INC-2008060613

PATIENT
  Sex: Male
  Weight: 77.11 kg

DRUGS (7)
  1. ZOLOFT [Suspect]
     Indication: ANXIETY
     Route: 048
     Dates: start: 20080501, end: 20080701
  2. ZOLOFT [Suspect]
     Indication: DEPRESSION
  3. ZOLOFT [Suspect]
     Indication: PANIC DISORDER
  4. BUPRENORPHINE HCL AND NALOXONE HCL [Concomitant]
  5. SEROQUEL [Concomitant]
  6. GABAPENTIN [Concomitant]
     Indication: BACK PAIN
  7. VALTREX [Concomitant]

REACTIONS (2)
  - DRUG INEFFECTIVE [None]
  - DRUG SCREEN FALSE POSITIVE [None]
